FAERS Safety Report 7429527-5 (Version None)
Quarter: 2011Q2

REPORT INFORMATION
  Report Type: 
  Country: None (occurrence: None)
  Receive Date: 20110421
  Receipt Date: 20110415
  Transmission Date: 20111010
  Serious: Yes (Other)
  Sender: FDA-Public Use
  Company Number: A0896996A

PATIENT
  Age: 74 Year
  Sex: Male

DRUGS (1)
  1. AVANDIA [Suspect]
     Dosage: 8MG PER DAY
     Route: 048
     Dates: start: 20031111, end: 20100204

REACTIONS (4)
  - DYSPNOEA [None]
  - CHEST PAIN [None]
  - MYOCARDIAL ISCHAEMIA [None]
  - HYPERTENSION [None]
